FAERS Safety Report 7884884-0 (Version None)
Quarter: 2011Q4

REPORT INFORMATION
  Report Type: 
  Country: None (occurrence: None)
  Receive Date: 20111102
  Receipt Date: 20111026
  Transmission Date: 20120403
  Serious: Yes (Hospitalization, Other)
  Sender: FDA-Public Use
  Company Number: PHHY2011BR86822

PATIENT
  Sex: Female

DRUGS (2)
  1. EXFORGE [Suspect]
     Indication: HYPERTENSION
     Dosage: VALSARTAN 320 AND AMLODIPINE BESYLATE 5MG ONE TABLET DAILY
     Dates: start: 20090101
  2. CHLOROQUINE HYDROCHLORIDE [Concomitant]
     Indication: ARTHRALGIA
     Dosage: 400 MG, QD
     Route: 048

REACTIONS (5)
  - EMPHYSEMA [None]
  - HYPERTENSION [None]
  - MEMORY IMPAIRMENT [None]
  - ARTHRALGIA [None]
  - DYSPNOEA [None]
